FAERS Safety Report 4751772-8 (Version None)
Quarter: 2005Q3

REPORT INFORMATION
  Report Type: 
  Country: None (occurrence: None)
  Receive Date: 20050822
  Receipt Date: 20040719
  Transmission Date: 20060218
  Serious: Yes (Other)
  Sender: FDA-Public Use
  Company Number: 2004048866

PATIENT
  Age: 45 Year
  Sex: Male
  Weight: 81.6475 kg

DRUGS (2)
  1. ZARONTIN [Suspect]
     Indication: CONVULSION
     Dosage: 1250 MG (2 IN 1 D), ORAL
     Route: 048
     Dates: start: 20030801
  2. VALPROATE SODIUM [Concomitant]

REACTIONS (2)
  - ANTICONVULSANT DRUG LEVEL INCREASED [None]
  - WHITE BLOOD CELL COUNT DECREASED [None]
